FAERS Safety Report 6342352-1 (Version None)
Quarter: 2009Q3

REPORT INFORMATION
  Report Type: 
  Country: None (occurrence: None)
  Receive Date: 20090907
  Receipt Date: 20090828
  Transmission Date: 20100115
  Serious: Yes (Other)
  Sender: FDA-Public Use
  Company Number: JP-ALLERGAN-0907850US

PATIENT
  Age: 41 Year
  Sex: Female

DRUGS (3)
  1. BOTOX [Suspect]
     Indication: TORTICOLLIS
     Dosage: UNK, SINGLE
     Route: 030
     Dates: start: 20080501, end: 20080501
  2. BOTOX [Suspect]
     Dosage: UNK
     Route: 030
     Dates: start: 20030815, end: 20030815
  3. CLONAZEPAM [Concomitant]

REACTIONS (3)
  - DYSPHAGIA [None]
  - EATING DISORDER [None]
  - WHEEZING [None]
